FAERS Safety Report 5872996-2 (Version None)
Quarter: 2008Q3

REPORT INFORMATION
  Report Type: 
  Country: None (occurrence: None)
  Receive Date: 20080903
  Receipt Date: 20080822
  Transmission Date: 20090109
  Serious: Yes (Other)
  Sender: FDA-Public Use
  Company Number: DSA_32333_2008

PATIENT
  Sex: Male
  Weight: 162 kg

DRUGS (2)
  1. CARDIZEM [Suspect]
     Indication: ATRIAL FIBRILLATION
     Dosage: DF
     Dates: start: 20080401, end: 20080715
  2. BUFFERIN EXTRA STRENGTH [Concomitant]

REACTIONS (3)
  - ATRIAL FIBRILLATION [None]
  - BLOOD PRESSURE FLUCTUATION [None]
  - PULSE ABNORMAL [None]
